FAERS Safety Report 6847572-5 (Version None)
Quarter: 2010Q3

REPORT INFORMATION
  Report Type: 
  Country: None (occurrence: None)
  Receive Date: 20100716
  Receipt Date: 20090103
  Transmission Date: 20110219
  Serious: No
  Sender: FDA-Public Use
  Company Number: US-PFIZER INC-2007078585

PATIENT
  Sex: Female

DRUGS (1)
  1. CHANTIX [Suspect]

REACTIONS (15)
  - ABNORMAL DREAMS [None]
  - ANGER [None]
  - ARTHRITIS [None]
  - DEPRESSION [None]
  - EMOTIONAL DISORDER [None]
  - FEAR [None]
  - FOOT FRACTURE [None]
  - INSOMNIA [None]
  - NERVOUSNESS [None]
  - NIGHTMARE [None]
  - PAIN [None]
  - PRURITUS [None]
  - STRESS [None]
  - VOMITING [None]
  - WEIGHT INCREASED [None]
